FAERS Safety Report 11078040 (Version 1)
Quarter: 2015Q2

REPORT INFORMATION
  Report Type: Spontaneous
  Country: US (occurrence: None)
  Receive Date: 20150429
  Receipt Date: 20150429
  Transmission Date: 20150821
  Serious: No
  Sender: FDA-Public Use
  Company Number: None

PATIENT
  Age: 55 Year
  Sex: Female

DRUGS (5)
  1. DIAZEPAM. [Concomitant]
     Active Substance: DIAZEPAM
  2. AMANTADINE [Concomitant]
     Active Substance: AMANTADINE
  3. AMPYRA [Suspect]
     Active Substance: DALFAMPRIDINE
     Indication: MULTIPLE SCLEROSIS
     Route: 048
     Dates: start: 20101223
  4. AMPYRA [Concomitant]
     Active Substance: DALFAMPRIDINE
  5. PREMARIN [Concomitant]
     Active Substance: ESTROGENS, CONJUGATED

REACTIONS (6)
  - Dysuria [None]
  - Micturition urgency [None]
  - Vulvovaginal pruritus [None]
  - Urine odour abnormal [None]
  - Pelvic discomfort [None]
  - Pollakiuria [None]

NARRATIVE: CASE EVENT DATE: 20150401
